FAERS Safety Report 13201377 (Version 1)
Quarter: 2017Q1

REPORT INFORMATION
  Report Type: Spontaneous
  Country: US (occurrence: US)
  Receive Date: 20170209
  Receipt Date: 20170209
  Transmission Date: 20170428
  Serious: No
  Sender: FDA-Public Use
  Company Number: US-ASTRAZENECA-2017SE11546

PATIENT
  Age: 10246 Day
  Sex: Female

DRUGS (1)
  1. BYDUREON [Suspect]
     Active Substance: EXENATIDE
     Indication: TYPE 2 DIABETES MELLITUS
     Route: 058
     Dates: start: 20161222, end: 20170127

REACTIONS (6)
  - Injection site erythema [Unknown]
  - Injection site hypersensitivity [Unknown]
  - Injection site warmth [Unknown]
  - Injection site inflammation [Unknown]
  - Injection site induration [Unknown]
  - Injection site nodule [Unknown]

NARRATIVE: CASE EVENT DATE: 20170119
